FAERS Safety Report 9009363 (Version 2)
Quarter: 2013Q1

REPORT INFORMATION
  Report Type: Spontaneous
  Country: US (occurrence: US)
  Receive Date: 20130111
  Receipt Date: 20130122
  Transmission Date: 20140127
  Serious: Yes (Other)
  Sender: FDA-Public Use
  Company Number: US-009507513-0909USA03435

PATIENT
  Age: 11 Year
  Sex: Male
  Weight: 40.82 kg

DRUGS (1)
  1. SINGULAIR [Suspect]
     Indication: ASTHMA
     Dosage: 5 MG, HS
     Route: 048
     Dates: start: 2007, end: 200903

REACTIONS (6)
  - Abnormal dreams [Recovering/Resolving]
  - Crying [Recovering/Resolving]
  - Fatigue [Recovering/Resolving]
  - Fear [Recovering/Resolving]
  - Nightmare [Recovered/Resolved]
  - Sleep disorder [Recovered/Resolved]
